FAERS Safety Report 17100140 (Version 1)
Quarter: 2019Q4

REPORT INFORMATION
  Report Type: Spontaneous
  Country: FR (occurrence: FR)
  Receive Date: 20191202
  Receipt Date: 20191202
  Transmission Date: 20200122
  Serious: Yes (Life-Threatening, Hospitalization)
  Sender: FDA-Public Use
  Company Number: FR-AVERITAS PHARMA, INC.-2019-19548

PATIENT
  Age: 86 Year
  Sex: Female
  Weight: 95 kg

DRUGS (1)
  1. QUTENZA [Suspect]
     Active Substance: CAPSAICIN
     Indication: DIABETIC NEUROPATHY
     Dosage: 2 DF, UNK
     Route: 003
     Dates: start: 201903, end: 20191106

REACTIONS (3)
  - Bundle branch block left [Not Recovered/Not Resolved]
  - Cardiac failure [Not Recovered/Not Resolved]
  - Condition aggravated [Not Recovered/Not Resolved]

NARRATIVE: CASE EVENT DATE: 20191106
